FAERS Safety Report 8901865 (Version 1)
Quarter: 2012Q4

REPORT INFORMATION
  Report Type: Spontaneous
  Country: US (occurrence: None)
  Receive Date: 20121109
  Receipt Date: 20121109
  Transmission Date: 20130627
  Serious: No
  Sender: FDA-Public Use
  Company Number: None

PATIENT
  Age: 87 Year
  Sex: Female

DRUGS (1)
  1. MOXIFLOXACIN [Suspect]
     Indication: PNEUMONIA
     Dosage: end date of use given 4-31-2011 invalid
     Dates: start: 20110425

REACTIONS (4)
  - Muscle spasms [None]
  - Pain [None]
  - Stress fracture [None]
  - Pain in extremity [None]
